FAERS Safety Report 5803212-5 (Version None)
Quarter: 2008Q3

REPORT INFORMATION
  Report Type: 
  Country: None (occurrence: None)
  Receive Date: 20080708
  Receipt Date: 20080702
  Transmission Date: 20090109
  Serious: Yes (Other)
  Sender: FDA-Public Use
  Company Number: CN-BAYER-200821413GPV

PATIENT
  Age: 65 Year
  Sex: Female

DRUGS (1)
  1. NEXAVAR [Suspect]
     Indication: METASTATIC RENAL CELL CARCINOMA
     Dosage: TOTAL DAILY DOSE: 800 MG
     Route: 048
     Dates: start: 20080618

REACTIONS (3)
  - BLOOD GLUCOSE FLUCTUATION [None]
  - FATIGUE [None]
  - HYPERPYREXIA [None]
